FAERS Safety Report 13408326 (Version 2)
Quarter: 2018Q1

REPORT INFORMATION
  Report Type: Spontaneous
  Country: US (occurrence: US)
  Receive Date: 20170406
  Receipt Date: 20180119
  Transmission Date: 20180508
  Serious: No
  Sender: FDA-Public Use
  Company Number: US-JNJFOC-20170206285

PATIENT
  Sex: Male

DRUGS (15)
  1. RISPERDAL [Suspect]
     Active Substance: RISPERIDONE
     Indication: ATTENTION DEFICIT/HYPERACTIVITY DISORDER
     Dosage: VARYING DOSE 2 MG AND 3 MG.
     Route: 048
     Dates: start: 20130314, end: 20131130
  2. RISPERDAL [Suspect]
     Active Substance: RISPERIDONE
     Indication: ATTENTION DEFICIT/HYPERACTIVITY DISORDER
     Dosage: VARYING DOSE 1 MG AND 2 MG.
     Route: 048
     Dates: start: 20050413, end: 20050831
  3. RISPERIDONE. [Suspect]
     Active Substance: RISPERIDONE
     Indication: PRODUCT USED FOR UNKNOWN INDICATION
     Route: 048
     Dates: start: 20060220, end: 20121120
  4. RISPERIDONE. [Suspect]
     Active Substance: RISPERIDONE
     Indication: ATTENTION DEFICIT/HYPERACTIVITY DISORDER
     Dosage: VARYING DOSE 2 MG AND 3 MG.
     Route: 048
     Dates: start: 20080831, end: 20131130
  5. RISPERIDONE. [Suspect]
     Active Substance: RISPERIDONE
     Indication: AFFECTIVE DISORDER
     Dosage: VARYING DOSE 2 MG AND 3 MG.
     Route: 048
     Dates: start: 20080831, end: 20131130
  6. RISPERDAL [Suspect]
     Active Substance: RISPERIDONE
     Indication: ATTENTION DEFICIT/HYPERACTIVITY DISORDER
     Dosage: VARYING DOSE 1 MG, 2 MG, 3 MG AND 4 MG.
     Route: 048
     Dates: start: 20060220, end: 20121120
  7. RISPERDAL [Suspect]
     Active Substance: RISPERIDONE
     Indication: BIPOLAR DISORDER
     Dosage: VARYING DOSE 1 MG, 2 MG, 3 MG AND 4 MG.
     Route: 048
     Dates: start: 20060220, end: 20121120
  8. RISPERDAL [Suspect]
     Active Substance: RISPERIDONE
     Indication: AFFECTIVE DISORDER
     Dosage: VARYING DOSE 1 MG, 2 MG, 3 MG AND 4 MG.
     Route: 048
     Dates: start: 20060220, end: 20121120
  9. RISPERIDONE. [Suspect]
     Active Substance: RISPERIDONE
     Indication: BIPOLAR DISORDER
     Dosage: VARYING DOSE 2 MG AND 3 MG.
     Route: 048
     Dates: start: 20080831, end: 20131130
  10. RISPERDAL [Suspect]
     Active Substance: RISPERIDONE
     Indication: BIPOLAR DISORDER
     Dosage: VARYING DOSE 1 MG AND 2 MG.
     Route: 048
     Dates: start: 20050413, end: 20050831
  11. RISPERIDONE. [Suspect]
     Active Substance: RISPERIDONE
     Indication: PRODUCT USED FOR UNKNOWN INDICATION
     Route: 048
     Dates: start: 20050413, end: 20050831
  12. RISPERDAL [Suspect]
     Active Substance: RISPERIDONE
     Indication: BIPOLAR DISORDER
     Dosage: VARYING DOSE 2 MG AND 3 MG.
     Route: 048
     Dates: start: 20130314, end: 20131130
  13. RISPERDAL [Suspect]
     Active Substance: RISPERIDONE
     Indication: AFFECTIVE DISORDER
     Dosage: VARYING DOSE 1 MG AND 2 MG.
     Route: 048
     Dates: start: 20050413, end: 20050831
  14. RISPERDAL [Suspect]
     Active Substance: RISPERIDONE
     Indication: AFFECTIVE DISORDER
     Dosage: VARYING DOSE 2 MG AND 3 MG.
     Route: 048
     Dates: start: 20130314, end: 20131130
  15. RISPERIDONE. [Suspect]
     Active Substance: RISPERIDONE
     Indication: PRODUCT USED FOR UNKNOWN INDICATION
     Route: 048
     Dates: start: 20130314, end: 20131130

REACTIONS (4)
  - Emotional disorder [Unknown]
  - Blood prolactin increased [Unknown]
  - Weight increased [Unknown]
  - Gynaecomastia [Unknown]
